FAERS Safety Report 19253905 (Version 9)
Quarter: 2023Q2

REPORT INFORMATION
  Report Type: Spontaneous
  Country: CA (occurrence: CA)
  Receive Date: 20210513
  Receipt Date: 20230630
  Transmission Date: 20230722
  Serious: Yes (Hospitalization, Other)
  Sender: FDA-Public Use
  Company Number: CA-ELVIUM LIFE SCIENCES-CAN-2021-0012518

PATIENT
  Age: 61 Year
  Sex: Female
  Weight: 70 kg

DRUGS (110)
  1. THEOPHYLLINE [Suspect]
     Active Substance: THEOPHYLLINE
     Indication: Product used for unknown indication
     Dosage: UNK
     Route: 065
  2. HYDROMORPHONE HYDROCHLORIDE [Suspect]
     Active Substance: HYDROMORPHONE HYDROCHLORIDE
     Indication: Product used for unknown indication
     Dosage: UNK
     Route: 065
  3. FLUTICASONE FUROATE [Suspect]
     Active Substance: FLUTICASONE FUROATE
     Indication: Product used for unknown indication
     Dosage: 1 DF, DAILY
     Route: 065
  4. FLUTICASONE FUROATE [Suspect]
     Active Substance: FLUTICASONE FUROATE
     Dosage: UNK
     Route: 065
  5. FLUTICASONE FUROATE [Suspect]
     Active Substance: FLUTICASONE FUROATE
     Dosage: UNK
     Route: 065
  6. ATIVAN [Suspect]
     Active Substance: LORAZEPAM
     Indication: Product used for unknown indication
     Dosage: 0.5 MG, QID
     Route: 065
  7. ATIVAN [Suspect]
     Active Substance: LORAZEPAM
     Dosage: UNK
     Route: 065
  8. ATIVAN [Suspect]
     Active Substance: LORAZEPAM
     Dosage: UNK
     Route: 065
  9. ATIVAN [Suspect]
     Active Substance: LORAZEPAM
     Dosage: 0.5 MG, QID
     Route: 065
  10. ATIVAN [Suspect]
     Active Substance: LORAZEPAM
     Dosage: 0.5 MG, UNK
     Route: 065
  11. ATIVAN [Suspect]
     Active Substance: LORAZEPAM
     Dosage: UNK
     Route: 065
  12. ATIVAN [Suspect]
     Active Substance: LORAZEPAM
     Dosage: 0.5 MG, QID
     Route: 065
  13. ATIVAN [Suspect]
     Active Substance: LORAZEPAM
     Dosage: 0.5 MG, UNK
     Route: 065
  14. ATIVAN [Suspect]
     Active Substance: LORAZEPAM
     Dosage: UNK
     Route: 065
  15. ATIVAN [Suspect]
     Active Substance: LORAZEPAM
     Dosage: 0.5 MG, QID
     Route: 065
  16. ATIVAN [Suspect]
     Active Substance: LORAZEPAM
     Dosage: 0.5 MG, UNK
     Route: 065
  17. ATIVAN [Suspect]
     Active Substance: LORAZEPAM
     Dosage: 2 MG, DAILY
     Route: 065
  18. ATIVAN [Suspect]
     Active Substance: LORAZEPAM
     Dosage: 0.5 MG, QID(4 EVERY 1 DAY)
     Route: 065
  19. ATIVAN [Suspect]
     Active Substance: LORAZEPAM
     Dosage: 0.5 MG, QID
     Route: 065
  20. ATIVAN [Suspect]
     Active Substance: LORAZEPAM
     Dosage: 0.5 MG, UNK
     Route: 065
  21. ATIVAN [Suspect]
     Active Substance: LORAZEPAM
     Dosage: 2 MG, DAILY
     Route: 065
  22. ATROVENT [Suspect]
     Active Substance: IPRATROPIUM BROMIDE
     Indication: Product used for unknown indication
     Dosage: 0.03 %, UNK
     Route: 065
  23. ATROVENT [Suspect]
     Active Substance: IPRATROPIUM BROMIDE
     Dosage: UNK
     Route: 065
  24. CLONAZEPAM [Suspect]
     Active Substance: CLONAZEPAM
     Indication: Product used for unknown indication
     Dosage: 0.5 MG, TID
     Route: 065
  25. CLONAZEPAM [Suspect]
     Active Substance: CLONAZEPAM
     Dosage: UNK
     Route: 065
  26. CLONAZEPAM [Suspect]
     Active Substance: CLONAZEPAM
     Dosage: 0.5 MG, TID
     Route: 065
  27. CLONAZEPAM [Suspect]
     Active Substance: CLONAZEPAM
     Dosage: 1.5 MG, DAILY (1 EVERY 1 DAYS)
     Route: 065
  28. CLONAZEPAM [Suspect]
     Active Substance: CLONAZEPAM
     Dosage: UNK
     Route: 065
  29. CLONAZEPAM [Suspect]
     Active Substance: CLONAZEPAM
     Dosage: 0.5 MG, TID
     Route: 065
  30. CLONAZEPAM [Suspect]
     Active Substance: CLONAZEPAM
     Dosage: 0.5 MG, TID
     Route: 065
  31. CLONAZEPAM [Suspect]
     Active Substance: CLONAZEPAM
     Dosage: 1.5 MG, DAILY (1 EVERY 1 DAYS)
     Route: 065
  32. CLONAZEPAM [Suspect]
     Active Substance: CLONAZEPAM
     Dosage: 1.5 MG, DAILY (1 EVERY 1 DAYS)
     Route: 065
  33. DEXTROMETHORPHAN [Suspect]
     Active Substance: DEXTROMETHORPHAN
     Indication: Product used for unknown indication
     Dosage: UNK, DAILY
     Route: 065
  34. DEXTROMETHORPHAN [Suspect]
     Active Substance: DEXTROMETHORPHAN
     Dosage: UNK
     Route: 065
  35. DEXTROMETHORPHAN [Suspect]
     Active Substance: DEXTROMETHORPHAN
     Dosage: UNK
     Route: 065
  36. DEXTROMETHORPHAN [Suspect]
     Active Substance: DEXTROMETHORPHAN
     Dosage: UNK
     Route: 065
  37. DEXTROMETHORPHAN [Suspect]
     Active Substance: DEXTROMETHORPHAN
     Dosage: UNK
     Route: 065
  38. DEXTROMETHORPHAN [Suspect]
     Active Substance: DEXTROMETHORPHAN
     Dosage: UNK, DAILY
     Route: 065
  39. ALBUTEROL\IPRATROPIUM BROMIDE [Suspect]
     Active Substance: ALBUTEROL\IPRATROPIUM BROMIDE
     Indication: Product used for unknown indication
     Dosage: UNK, TID
     Route: 065
  40. ALBUTEROL\IPRATROPIUM BROMIDE [Suspect]
     Active Substance: ALBUTEROL\IPRATROPIUM BROMIDE
     Dosage: UNK
     Route: 065
  41. LETROZOLE [Suspect]
     Active Substance: LETROZOLE
     Indication: Product used for unknown indication
     Dosage: 2.5 MG, DAILY
     Route: 065
  42. MOMETASONE [Suspect]
     Active Substance: MOMETASONE
     Indication: Product used for unknown indication
     Dosage: UNK
     Route: 065
  43. MOMETASONE [Suspect]
     Active Substance: MOMETASONE
     Dosage: UNK
     Route: 065
  44. MOXIFLOXACIN HYDROCHLORIDE [Suspect]
     Active Substance: MOXIFLOXACIN HYDROCHLORIDE
     Indication: Antibiotic therapy
     Dosage: UNK
     Route: 065
  45. MUCOMYST [Suspect]
     Active Substance: ACETYLCYSTEINE
     Indication: Product used for unknown indication
     Dosage: 200 MG/ML, UNK
  46. MUCOMYST [Suspect]
     Active Substance: ACETYLCYSTEINE
     Dosage: UNK
     Route: 065
  47. OMEPRAZOLE MAGNESIUM [Suspect]
     Active Substance: OMEPRAZOLE MAGNESIUM
     Indication: Product used for unknown indication
     Dosage: 20 MG, DAILY
     Route: 065
  48. PREDNISONE [Suspect]
     Active Substance: PREDNISONE
     Indication: Sinus disorder
     Dosage: 10 MG, DAILY
     Route: 065
  49. PREDNISONE [Suspect]
     Active Substance: PREDNISONE
     Dosage: UNK
     Route: 065
  50. PREDNISONE [Suspect]
     Active Substance: PREDNISONE
     Dosage: 10 MG, DAILY
     Route: 065
  51. PREDNISONE [Suspect]
     Active Substance: PREDNISONE
     Dosage: 10 MG, DAILY
     Route: 055
  52. PREDNISONE [Suspect]
     Active Substance: PREDNISONE
     Dosage: 10 MG, DAILY
     Route: 065
  53. PREDNISONE [Suspect]
     Active Substance: PREDNISONE
     Dosage: 10 MG, DAILY
     Route: 055
  54. PREDNISONE [Suspect]
     Active Substance: PREDNISONE
     Dosage: 10 MG, DAILY
     Route: 065
  55. PREDNISONE [Suspect]
     Active Substance: PREDNISONE
     Dosage: 10 MG, DAILY
     Route: 055
  56. PREDNISONE [Suspect]
     Active Substance: PREDNISONE
     Dosage: 10 MG, DAILY
     Route: 065
  57. PREDNISONE [Suspect]
     Active Substance: PREDNISONE
     Dosage: 10 MG, DAILY
     Route: 055
  58. PULMICORT TURBUHALER [Suspect]
     Active Substance: BUDESONIDE
     Indication: Product used for unknown indication
     Dosage: UNK, BID
  59. PULMICORT TURBUHALER [Suspect]
     Active Substance: BUDESONIDE
     Dosage: UNK
  60. PULMICORT TURBUHALER [Suspect]
     Active Substance: BUDESONIDE
     Dosage: 2 KG, UNK
     Route: 065
  61. PULMICORT TURBUHALER [Suspect]
     Active Substance: BUDESONIDE
     Dosage: UNK
  62. PULMICORT TURBUHALER [Suspect]
     Active Substance: BUDESONIDE
     Dosage: 2 KG, UNK
     Route: 065
  63. PULMICORT TURBUHALER [Suspect]
     Active Substance: BUDESONIDE
     Dosage: UNK
  64. PULMICORT TURBUHALER [Suspect]
     Active Substance: BUDESONIDE
     Dosage: 2 KG, UNK
     Route: 065
  65. PULMICORT TURBUHALER [Suspect]
     Active Substance: BUDESONIDE
     Dosage: UNK
     Route: 065
  66. PULMICORT TURBUHALER [Suspect]
     Active Substance: BUDESONIDE
     Dosage: 2 KG, UNK
     Route: 065
  67. SERTRALINE [Suspect]
     Active Substance: SERTRALINE HYDROCHLORIDE
     Indication: Product used for unknown indication
     Dosage: 1 DOSAGE FORM, DAILY
     Route: 065
  68. TYLENOL [Suspect]
     Active Substance: ACETAMINOPHEN
     Indication: Product used for unknown indication
     Dosage: UNK
     Route: 065
  69. ERGOCALCIFEROL [Suspect]
     Active Substance: ERGOCALCIFEROL
     Indication: Product used for unknown indication
     Dosage: UNK
     Route: 065
  70. ACETYLCHOLINE CHLORIDE [Suspect]
     Active Substance: ACETYLCHOLINE CHLORIDE
     Indication: Product used for unknown indication
     Dosage: UNK
     Route: 065
  71. ARNUITY ELLIPTA [Suspect]
     Active Substance: FLUTICASONE FUROATE
     Indication: Product used for unknown indication
     Dosage: 1 DF, DAILY
     Route: 065
  72. ARNUITY ELLIPTA [Suspect]
     Active Substance: FLUTICASONE FUROATE
     Dosage: 1 DF, DAILY
     Route: 065
  73. ARNUITY ELLIPTA [Suspect]
     Active Substance: FLUTICASONE FUROATE
     Dosage: 1 DF, UNK
     Route: 065
  74. ARNUITY ELLIPTA [Suspect]
     Active Substance: FLUTICASONE FUROATE
     Dosage: 1 DF, DAILY
     Route: 065
  75. ARNUITY ELLIPTA [Suspect]
     Active Substance: FLUTICASONE FUROATE
     Dosage: 1 DF, UNK
     Route: 065
  76. AVELOX [Suspect]
     Active Substance: MOXIFLOXACIN HYDROCHLORIDE
     Indication: Antibiotic therapy
     Dosage: UNK
     Route: 065
  77. COMBIVENT [Suspect]
     Active Substance: ALBUTEROL SULFATE\IPRATROPIUM BROMIDE
     Indication: Product used for unknown indication
     Dosage: 3.0 KG, UNK
     Route: 065
  78. COMBIVENT [Suspect]
     Active Substance: ALBUTEROL SULFATE\IPRATROPIUM BROMIDE
     Dosage: UNK
     Route: 065
  79. ERGOCALCIFEROL [Suspect]
     Active Substance: ERGOCALCIFEROL
     Indication: Product used for unknown indication
     Dosage: UNK
     Route: 065
  80. ERGOCALCIFEROL [Suspect]
     Active Substance: ERGOCALCIFEROL
     Dosage: 1 DF, DAILY (1 EVERY 1 DAYS)
     Route: 065
  81. ALBUTEROL\IPRATROPIUM [Suspect]
     Active Substance: ALBUTEROL\IPRATROPIUM
     Indication: Product used for unknown indication
     Dosage: UNK, TID
     Route: 065
  82. ALBUTEROL\IPRATROPIUM [Suspect]
     Active Substance: ALBUTEROL\IPRATROPIUM
     Dosage: UNK
     Route: 065
  83. ALBUTEROL\IPRATROPIUM [Suspect]
     Active Substance: ALBUTEROL\IPRATROPIUM
     Dosage: UNK, TID
     Route: 065
  84. ALBUTEROL\IPRATROPIUM [Suspect]
     Active Substance: ALBUTEROL\IPRATROPIUM
     Dosage: UNK
     Route: 065
  85. ALBUTEROL\IPRATROPIUM [Suspect]
     Active Substance: ALBUTEROL\IPRATROPIUM
     Dosage: UNK, TID
     Route: 065
  86. MIOCHOL E [Suspect]
     Active Substance: ACETYLCHOLINE CHLORIDE
     Indication: Product used for unknown indication
     Dosage: UNK
     Route: 065
  87. OMEPRAZOLE MAGNESIUM [Suspect]
     Active Substance: OMEPRAZOLE MAGNESIUM
     Indication: Product used for unknown indication
     Dosage: 20 MG, DAILY
     Route: 065
  88. OMEPRAZOLE MAGNESIUM [Suspect]
     Active Substance: OMEPRAZOLE MAGNESIUM
     Dosage: 20 MG, DAILY (1 EVERY 1 DAYS)
     Route: 048
  89. TRELEGY ELLIPTA [Suspect]
     Active Substance: FLUTICASONE FUROATE\UMECLIDINIUM BROMIDE\VILANTEROL TRIFENATATE
     Indication: Product used for unknown indication
     Dosage: 1 DF, DAILY
     Route: 055
  90. TRELEGY ELLIPTA [Suspect]
     Active Substance: FLUTICASONE FUROATE\UMECLIDINIUM BROMIDE\VILANTEROL TRIFENATATE
     Dosage: 1 DF, DAILY
     Route: 055
  91. TRELEGY ELLIPTA [Suspect]
     Active Substance: FLUTICASONE FUROATE\UMECLIDINIUM BROMIDE\VILANTEROL TRIFENATATE
     Dosage: 1 DF, UNK
     Route: 065
  92. TRELEGY ELLIPTA [Suspect]
     Active Substance: FLUTICASONE FUROATE\UMECLIDINIUM BROMIDE\VILANTEROL TRIFENATATE
     Dosage: 1 DF, DAILY
     Route: 055
  93. TRELEGY ELLIPTA [Suspect]
     Active Substance: FLUTICASONE FUROATE\UMECLIDINIUM BROMIDE\VILANTEROL TRIFENATATE
     Dosage: 1 DF, UNK
     Route: 065
  94. UMECLIDINIUM BROMIDE\VILANTEROL TRIFENATATE [Suspect]
     Active Substance: UMECLIDINIUM BROMIDE\VILANTEROL TRIFENATATE
     Indication: Product used for unknown indication
     Dosage: 1 DF, DAILY
  95. UMECLIDINIUM BROMIDE\VILANTEROL TRIFENATATE [Suspect]
     Active Substance: UMECLIDINIUM BROMIDE\VILANTEROL TRIFENATATE
     Dosage: UNK
  96. UMECLIDINIUM BROMIDE [Suspect]
     Active Substance: UMECLIDINIUM BROMIDE
     Indication: Product used for unknown indication
     Dosage: UNK
     Route: 065
  97. ALBUTEROL [Suspect]
     Active Substance: ALBUTEROL
     Indication: Asthma
     Dosage: 100 MCG, UNK
     Route: 065
  98. ALBUTEROL [Suspect]
     Active Substance: ALBUTEROL
     Dosage: UNK
     Route: 065
  99. ALBUTEROL [Suspect]
     Active Substance: ALBUTEROL
     Dosage: 100 MCG, UNK
     Route: 065
  100. ALBUTEROL [Suspect]
     Active Substance: ALBUTEROL
     Dosage: 100 MG, UNK
     Route: 065
  101. ALBUTEROL [Suspect]
     Active Substance: ALBUTEROL
     Dosage: UNK
     Route: 065
  102. ALBUTEROL [Suspect]
     Active Substance: ALBUTEROL
     Dosage: 10 MICROGRAM, DAILY
     Route: 065
  103. ANORO ELLIPTA [Suspect]
     Active Substance: UMECLIDINIUM BROMIDE\VILANTEROL TRIFENATATE
     Indication: Product used for unknown indication
     Dosage: 1 DF, DAILY (1 EVERY 1 DAY)
     Route: 065
  104. SERTRALINE HYDROCHLORIDE [Suspect]
     Active Substance: SERTRALINE HYDROCHLORIDE
     Indication: Product used for unknown indication
     Dosage: UNK
     Route: 065
  105. HYDROMORPHONE HCL [Suspect]
     Active Substance: HYDROMORPHONE HYDROCHLORIDE
     Indication: Product used for unknown indication
     Dosage: INJECTION USP SOLUTION
     Route: 030
  106. ALBUTEROL SULFATE\IPRATROPIUM BROMIDE [Suspect]
     Active Substance: ALBUTEROL SULFATE\IPRATROPIUM BROMIDE
     Indication: Product used for unknown indication
     Dosage: UNK, TID
     Route: 065
  107. ALBUTEROL SULFATE\IPRATROPIUM BROMIDE [Suspect]
     Active Substance: ALBUTEROL SULFATE\IPRATROPIUM BROMIDE
     Dosage: UNK
     Route: 065
  108. ALBUTEROL SULFATE\IPRATROPIUM BROMIDE [Suspect]
     Active Substance: ALBUTEROL SULFATE\IPRATROPIUM BROMIDE
     Dosage: UNK, TID
     Route: 065
  109. UMECLIDINIUM BROMIDE\VILANTEROL TRIFENATATE [Suspect]
     Active Substance: UMECLIDINIUM BROMIDE\VILANTEROL TRIFENATATE
     Indication: Product used for unknown indication
     Dosage: 1 DF, DAILY
  110. UMECLIDINIUM BROMIDE\VILANTEROL TRIFENATATE [Suspect]
     Active Substance: UMECLIDINIUM BROMIDE\VILANTEROL TRIFENATATE
     Dosage: 1 DOSAGE FORM, DAILY

REACTIONS (29)
  - Asthma [Recovered/Resolved]
  - Full blood count abnormal [Recovered/Resolved]
  - Breast cancer [Recovered/Resolved]
  - Breast conserving surgery [Recovered/Resolved]
  - Chest discomfort [Recovered/Resolved]
  - Chronic obstructive pulmonary disease [Recovered/Resolved]
  - Cough [Recovered/Resolved]
  - Eosinophilia [Recovered/Resolved]
  - Hypertension [Recovered/Resolved]
  - Loss of personal independence in daily activities [Recovered/Resolved]
  - Mental disorder [Recovered/Resolved]
  - Nasal congestion [Recovered/Resolved]
  - Obstruction [Recovered/Resolved]
  - Pneumonia [Recovered/Resolved]
  - Productive cough [Recovered/Resolved]
  - Respiratory disorder [Recovered/Resolved]
  - Rhinorrhoea [Recovered/Resolved]
  - Sinus disorder [Recovered/Resolved]
  - Sinusitis [Recovered/Resolved]
  - Sleep disorder due to a general medical condition [Recovered/Resolved]
  - Therapeutic product effect incomplete [Recovered/Resolved]
  - Wheezing [Recovered/Resolved]
  - Mental impairment [Recovered/Resolved]
  - Malaise [Recovered/Resolved]
  - Sleep disorder [Recovered/Resolved]
  - Depression [Recovered/Resolved]
  - Dyspnoea [Recovered/Resolved]
  - Tremor [Recovered/Resolved]
  - Anxiety [Recovered/Resolved]
